FAERS Safety Report 9804486 (Version 1)
Quarter: 2014Q1

REPORT INFORMATION
  Report Type: Spontaneous
  Country: US (occurrence: US)
  Receive Date: 20140108
  Receipt Date: 20140108
  Transmission Date: 20141002
  Serious: Yes (Life-Threatening, Hospitalization)
  Sender: FDA-Public Use
  Company Number: US-GLAXOSMITHKLINE-A1055178A

PATIENT
  Sex: Female

DRUGS (12)
  1. VOTRIENT [Suspect]
     Indication: PRODUCT USED FOR UNKNOWN INDICATION
     Dosage: 800MG PER DAY
     Route: 048
     Dates: start: 20130224
  2. SIMVASTATIN [Concomitant]
  3. LISINOPRIL [Concomitant]
  4. LEVOTHYROXINE [Concomitant]
  5. CARVEDILOL [Concomitant]
  6. SPIRONOLACTONE [Concomitant]
  7. LETROZOLE [Concomitant]
  8. ADVAIR [Concomitant]
  9. ALBUTEROL [Concomitant]
  10. ARSENIC TRIOXIDE [Concomitant]
  11. LORAZEPAM [Concomitant]
  12. ALEVE [Concomitant]

REACTIONS (1)
  - Bronchitis [Unknown]
